FAERS Safety Report 21774107 (Version 1)
Quarter: 2022Q4

REPORT INFORMATION
  Report Type: Spontaneous
  Country: JP (occurrence: JP)
  Receive Date: 20221223
  Receipt Date: 20221223
  Transmission Date: 20230113
  Serious: Yes (Death, Other)
  Sender: FDA-Public Use
  Company Number: JP-JAZZ-2022-JP-036694

PATIENT
  Age: 60 Year
  Sex: Male
  Weight: 56.9 kg

DRUGS (3)
  1. DEFITELIO [Suspect]
     Active Substance: DEFIBROTIDE SODIUM
     Indication: Venoocclusive liver disease
     Dosage: 25 MILLIGRAM/KILOGRAM
     Route: 042
     Dates: start: 20221003, end: 20221113
  2. DEFITELIO [Suspect]
     Active Substance: DEFIBROTIDE SODIUM
     Dosage: UNK
     Route: 042
     Dates: start: 20221124, end: 20221201
  3. ACOALAN [Concomitant]
     Indication: Product used for unknown indication
     Dosage: UNK
     Dates: end: 20221130

REACTIONS (5)
  - Acute graft versus host disease [Fatal]
  - Hypotension [Fatal]
  - Pulmonary haemorrhage [Fatal]
  - Upper gastrointestinal haemorrhage [Recovered/Resolved]
  - Epistaxis [Unknown]

NARRATIVE: CASE EVENT DATE: 20220101
